FAERS Safety Report 9516626 (Version 1)
Quarter: 2013Q1

REPORT INFORMATION
  Report Type: Spontaneous
  Country: US (occurrence: None)
  Receive Date: 20130305
  Receipt Date: 20130305
  Transmission Date: 20140127
  Serious: Yes (Other)
  Sender: FDA-Public Use
  Company Number: 163-21880-12011371

PATIENT
  Sex: Female
  Weight: 62.2 kg

DRUGS (26)
  1. REVLIMID [Suspect]
     Indication: PLASMA CELL MYELOMA
     Dosage: 10 MG, 21 IN 21 D, PO
     Dates: start: 2010
  2. ZOMETA(ZOLEDRONIC ACID)(UNKNOWN) [Concomitant]
  3. ACYCLOVIR(ACICLOVIR)(200 MILLIGRAM, CAPSULES) [Concomitant]
  4. NEXIUM(ESOMEPRAZOLE)(UNKNOWN) [Concomitant]
  5. LOPERAMIDE(LOPERAMIDE)(UNKNOWN) [Concomitant]
  6. MULTIVITAMINS(MULTIVITAMINS)(TABLETS) [Concomitant]
  7. SERTRALINE HCL(SERTRALINE HYDROCHLORIDE)(50 MILLIGRAM, TABLETS) [Concomitant]
  8. TRAZODONE HCL(TRAZODONE HYDROCHLORIDE)(25 MILLIGRAM, TABLETS) [Concomitant]
  9. ZOLEDRONIC ACID(ZOLEDRONIC ACID) (0.8 MILLIGRAM/MILLILITERS, UNKNOWN) [Concomitant]
  10. CALCIUM CITRATE(CALCIUM CITRATE) (400 MILLIGRAM, CAPSULES) [Concomitant]
  11. ACIDOPHILUS(LACTOBACILLUS ACIDOPHILUS)(CAPSULES [Concomitant]
  12. FISH OIL(FISH OIL) (1000 MILLIGRAM, CAPSULES) [Concomitant]
  13. MAGNESIUM(MAGNESIUM)(250 MILLIGRAM, CAPSULES) [Concomitant]
  14. GLUCOSAMINE(GLUCOSAMINE)(500 MILLIGRAM, CAPSULES) [Concomitant]
  15. FLAXSEED OIL(LINSEED OIL)(1000 MILLIGRAM, CAPSULES) [Concomitant]
  16. EQUATE FIBER THERAPY(POLYCARBOPHIL CALCIUM)(POWDER) [Concomitant]
  17. VITAMIN U(ERGOCALCIFEROL)(TABLETS) [Concomitant]
  18. VITAMIN C(ASCORBIC ACID)(TABLETS) [Concomitant]
  19. ANTIBIOTICS(ANTIBIOTICS)(UNKNOWN) [Concomitant]
  20. NORMAL SALINE(SODIUM CHLORIDE)(INJECTION) [Concomitant]
  21. ABSORBABLE CALCIUM(CALCIUM)(2000 MILLIGRAM, CAPSULES) [Concomitant]
  22. MSM(METHYLSULFONYLMETHANE) (1500 MILLIGRAM, TABLETS) [Concomitant]
  23. RED YEAST RICE(YEAST)(600 MILLIGRAM, TABLETS) [Concomitant]
  24. OMEPRAZOLE MAGNESIUM(OMEPRAZOLE [Concomitant]
  25. CEFTIN(CEFUROXIME AXETIL)(250 MILLIGRAM, TABLETS) [Concomitant]
  26. PRILOSEC(OMEPRAZOLE)(TABLETS) [Concomitant]

REACTIONS (4)
  - Diarrhoea [None]
  - Rash [None]
  - Neutropenia [None]
  - White blood cell count decreased [None]
